FAERS Safety Report 16796620 (Version 1)
Quarter: 2019Q3

REPORT INFORMATION
  Report Type: Spontaneous
  Country: US (occurrence: US)
  Receive Date: 20190911
  Receipt Date: 20190911
  Transmission Date: 20191005
  Serious: No
  Sender: FDA-Public Use
  Company Number: US-JNJFOC-20190910268

PATIENT
  Age: 35 Year
  Sex: Female
  Weight: 68.1 kg

DRUGS (1)
  1. INVEGA SUSTENNA [Suspect]
     Active Substance: PALIPERIDONE PALMITATE
     Indication: PRODUCT USED FOR UNKNOWN INDICATION
     Route: 030
     Dates: start: 2019

REACTIONS (1)
  - Personality change [Not Recovered/Not Resolved]

NARRATIVE: CASE EVENT DATE: 2019
